FAERS Safety Report 9057578 (Version 1)
Quarter: 2013Q1

REPORT INFORMATION
  Report Type: Spontaneous
  Country: US (occurrence: None)
  Receive Date: 20130204
  Receipt Date: 20130204
  Transmission Date: 20140127
  Serious: Yes (Hospitalization)
  Sender: FDA-Public Use
  Company Number: None

PATIENT
  Age: 75 Year
  Sex: Female
  Weight: 61.8 kg

DRUGS (11)
  1. PLAVIX [Suspect]
     Indication: TRANSIENT ISCHAEMIC ATTACK
     Route: 048
  2. FOLIC ACID [Concomitant]
  3. SYNTHROID [Concomitant]
  4. VITAMIN B12 [Concomitant]
  5. B COMPLEX [Concomitant]
  6. TYLENOL [Concomitant]
  7. WELLBUTRIN [Concomitant]
  8. METHOTREXATE [Concomitant]
  9. ENBREL [Concomitant]
  10. CITALOPRAM [Concomitant]
  11. LISINOPRIL [Concomitant]

REACTIONS (3)
  - Fall [None]
  - Headache [None]
  - Subdural haematoma [None]
